FAERS Safety Report 4849135-X (Version None)
Quarter: 2005Q4

REPORT INFORMATION
  Report Type: 
  Country: None (occurrence: None)
  Receive Date: 20051209
  Receipt Date: 20051128
  Transmission Date: 20060501
  Serious: Yes (Other)
  Sender: FDA-Public Use
  Company Number: 2005UW18088

PATIENT
  Age: 20 Year
  Sex: Female

DRUGS (5)
  1. SEROQUEL [Suspect]
     Indication: PSYCHOTIC DISORDER
     Dosage: 12.5 MG QAM / 25 MG QHS
     Route: 048
     Dates: start: 20051112, end: 20051112
  2. SEROQUEL [Suspect]
     Dosage: 12.5 MG QAM / 50 MG QHS
     Route: 048
     Dates: start: 20051113, end: 20051115
  3. SEROQUEL [Suspect]
     Route: 048
     Dates: start: 20051116
  4. PROZAC [Concomitant]
  5. CARDIZEM [Concomitant]

REACTIONS (3)
  - URINARY INCONTINENCE [None]
  - URINARY RETENTION [None]
  - URINARY TRACT INFECTION [None]
